FAERS Safety Report 20231711 (Version 4)
Quarter: 2022Q4

REPORT INFORMATION
  Report Type: Spontaneous
  Country: JP (occurrence: JP)
  Receive Date: 20211227
  Receipt Date: 20221221
  Transmission Date: 20230112
  Serious: Yes (Hospitalization, Other)
  Sender: FDA-Public Use
  Company Number: JP-ABBVIE-21K-087-4213094-00

PATIENT
  Age: 49 Year
  Sex: Female
  Weight: 51 kg

DRUGS (5)
  1. VENCLEXTA [Suspect]
     Active Substance: VENETOCLAX
     Indication: Acute myeloid leukaemia
     Dosage: 50 MILLIGRAM
     Route: 048
     Dates: start: 20211001, end: 20211001
  2. VENCLEXTA [Suspect]
     Active Substance: VENETOCLAX
     Indication: Acute myeloid leukaemia
     Dosage: 100 MILLIGRAM
     Dates: start: 20211002, end: 20211002
  3. VENCLEXTA [Suspect]
     Active Substance: VENETOCLAX
     Indication: Acute myeloid leukaemia
     Dosage: 200 MILLIGRAM
     Route: 048
     Dates: start: 20211003, end: 20211127
  4. VIDAZA [Suspect]
     Active Substance: AZACITIDINE
     Indication: Product used for unknown indication
     Dosage: 75 MG/M2
     Route: 058
     Dates: start: 20211001, end: 20211007
  5. VIDAZA [Suspect]
     Active Substance: AZACITIDINE
     Indication: Product used for unknown indication
     Dosage: 75 MG/M2
     Route: 058
     Dates: start: 20211101, end: 20211107

REACTIONS (2)
  - Myelosuppression [Recovering/Resolving]
  - Acute myeloid leukaemia recurrent [Unknown]

NARRATIVE: CASE EVENT DATE: 20211011
